FAERS Safety Report 18455436 (Version 1)
Quarter: 2020Q4

REPORT INFORMATION
  Report Type: Spontaneous
  Country: FR (occurrence: FR)
  Receive Date: 20201102
  Receipt Date: 20201102
  Transmission Date: 20210114
  Serious: Yes (Hospitalization, Other)
  Sender: FDA-Public Use
  Company Number: FR-GILEAD-2020-0501883

PATIENT
  Age: 77 Year
  Sex: Male
  Weight: 69.5 kg

DRUGS (3)
  1. ENDOXAN [Concomitant]
     Active Substance: CYCLOPHOSPHAMIDE
     Route: 042
     Dates: start: 20200628
  2. FLUDARABINE TEVA [Concomitant]
     Active Substance: FLUDARABINE PHOSPHATE
     Route: 042
     Dates: start: 20200628
  3. YESCARTA [Suspect]
     Active Substance: AXICABTAGENE CILOLEUCEL
     Indication: DIFFUSE LARGE B-CELL LYMPHOMA RECURRENT
     Route: 042
     Dates: start: 20200703

REACTIONS (5)
  - Cytokine release syndrome [Recovered/Resolved]
  - Bone marrow failure [Not Recovered/Not Resolved]
  - Eastern Cooperative Oncology Group performance status worsened [Recovering/Resolving]
  - Depression [Recovering/Resolving]
  - Magnetic resonance imaging [Recovered/Resolved]

NARRATIVE: CASE EVENT DATE: 20200704
